FAERS Safety Report 9963751 (Version 1)
Quarter: 2014Q1

REPORT INFORMATION
  Report Type: Report from Study
  Country: US (occurrence: US)
  Receive Date: 20140305
  Receipt Date: 20140305
  Transmission Date: 20141002
  Serious: No
  Sender: FDA-Public Use
  Company Number: US-ABBVIE-13P-163-1118974-00

PATIENT
  Age: 60 Year
  Sex: Female

DRUGS (13)
  1. HUMIRA [Suspect]
     Indication: RHEUMATOID ARTHRITIS
     Dates: start: 20130710
  2. CRESTOR [Concomitant]
     Indication: HYPERLIPIDAEMIA
  3. METOPROLOL [Concomitant]
     Indication: CORONARY ARTERY DISEASE
  4. METFORMIN [Concomitant]
     Indication: DIABETES MELLITUS
  5. ONGLYZA [Concomitant]
     Indication: DIABETES MELLITUS
     Dosage: 5MG DAILY
  6. LYRICA [Concomitant]
     Indication: NEUROPATHY PERIPHERAL
  7. GLIPIZIDE [Concomitant]
     Indication: DIABETES MELLITUS
  8. SINGULAIR [Concomitant]
     Indication: ASTHMA
     Dosage: 10MG DAILY
  9. XOPENEX INHALER [Concomitant]
     Indication: ASTHMA
  10. LUNESTA [Concomitant]
     Indication: INSOMNIA
     Dosage: EVERY BEDTIME
  11. ZYRTEC [Concomitant]
     Indication: HYPERSENSITIVITY
     Dosage: DAILY
  12. TRAMADOL [Concomitant]
     Indication: ARTHRALGIA
  13. VOLTATRN CREAM [Concomitant]
     Indication: ARTHRALGIA
     Route: 061

REACTIONS (4)
  - Arthropathy [Not Recovered/Not Resolved]
  - Injection site pain [Not Recovered/Not Resolved]
  - Erythema [Not Recovered/Not Resolved]
  - Skin burning sensation [Not Recovered/Not Resolved]
